FAERS Safety Report 7066523-4 (Version None)
Quarter: 2010Q4

REPORT INFORMATION
  Report Type: 
  Country: None (occurrence: None)
  Receive Date: 20101027
  Receipt Date: 20100409
  Transmission Date: 20110411
  Serious: Yes (Other)
  Sender: FDA-Public Use
  Company Number: US-WYE-H13696210

PATIENT
  Age: 71 Year
  Sex: Female

DRUGS (4)
  1. PREMPRO [Suspect]
     Indication: MENOPAUSAL SYMPTOMS
     Dosage: STARTED ON .625/2.5 MG DAILY
     Route: 048
     Dates: start: 19930101, end: 20100203
  2. PREMPRO [Suspect]
     Dosage: 0.3/1.5 MG
     Route: 048
     Dates: start: 20040101
  3. VITAMINS [Concomitant]
  4. SYNTHROID [Concomitant]

REACTIONS (5)
  - BREAST CANCER [None]
  - BREAST FIBROMA [None]
  - DEPRESSION [None]
  - LETHARGY [None]
  - PRODUCT PACKAGING ISSUE [None]
